FAERS Safety Report 17118226 (Version 2)
Quarter: 2020Q1

REPORT INFORMATION
  Report Type: Spontaneous
  Country: FR (occurrence: FR)
  Receive Date: 20191205
  Receipt Date: 20200109
  Transmission Date: 20200409
  Serious: Yes (Death, Hospitalization, Other)
  Sender: FDA-Public Use
  Company Number: FR-009507513-1912FRA002335

PATIENT
  Age: 56 Year
  Sex: Male

DRUGS (2)
  1. VIRAFERONPEG [Suspect]
     Active Substance: PEGINTERFERON ALFA-2B
     Indication: HEPATITIS C
     Dosage: 135 MICROGRAM, EVERY 1 WEEK; NUMBER OF SEPARATE DOSAGES: 1
     Route: 058
     Dates: start: 20060203, end: 20070203
  2. REBETOL [Suspect]
     Active Substance: RIBAVIRIN
     Indication: HEPATITIS C
     Dosage: 1200 MG EVERY 1 DAY; NUMBER OF SEPARATE DOSAGES: 1
     Route: 048
     Dates: start: 20060203, end: 20070203

REACTIONS (2)
  - Hepatocellular carcinoma [Fatal]
  - Intervertebral disc disorder [Recovered/Resolved]

NARRATIVE: CASE EVENT DATE: 20170907
